FAERS Safety Report 8367347-8 (Version None)
Quarter: 2012Q2

REPORT INFORMATION
  Report Type: 
  Country: None (occurrence: None)
  Receive Date: 20120517
  Receipt Date: 20120514
  Transmission Date: 20120825
  Serious: Yes (Hospitalization)
  Sender: FDA-Public Use
  Company Number: US-BAYER-2012-003648

PATIENT
  Age: 42 Year
  Sex: Female
  Weight: 63.492 kg

DRUGS (4)
  1. SYNTHROID [Concomitant]
     Dosage: UNK
  2. YAZ [Suspect]
     Indication: PREMENSTRUAL SYNDROME
     Dosage: UNK
     Route: 048
     Dates: start: 20060101, end: 20080101
  3. YASMIN [Suspect]
     Indication: PREMENSTRUAL SYNDROME
     Dosage: UNK
  4. NAPROXEN (ALEVE) [Concomitant]
     Dosage: UNK

REACTIONS (5)
  - FEAR [None]
  - GALLBLADDER INJURY [None]
  - PAIN [None]
  - BILIARY DYSKINESIA [None]
  - CHOLECYSTITIS [None]
